FAERS Safety Report 18309688 (Version 21)
Quarter: 2022Q1

REPORT INFORMATION
  Report Type: Spontaneous
  Country: CA (occurrence: CA)
  Receive Date: 20200925
  Receipt Date: 20220307
  Transmission Date: 20220424
  Serious: Yes (Hospitalization, Other)
  Sender: FDA-Public Use
  Company Number: CA-CELLTRION INC.-2019CA026518

PATIENT

DRUGS (32)
  1. INFLECTRA [Suspect]
     Active Substance: INFLIXIMAB-DYYB
     Indication: Crohn^s disease
     Dosage: 5 MG/KG OR 295 MG AT WEEK 0, 2, 6 THEN EVERY 8 WEEKS
     Route: 042
     Dates: start: 20191017, end: 20200730
  2. INFLECTRA [Suspect]
     Active Substance: INFLIXIMAB-DYYB
     Dosage: 5 MG/KG OR 295 MG AT WEEK 0, 2, 6 THEN EVERY 8 WEEKS
     Route: 042
     Dates: start: 20191127
  3. INFLECTRA [Suspect]
     Active Substance: INFLIXIMAB-DYYB
     Dosage: 5 MG/KG OR 295 MG AT WEEK 0, 2, 6 THEN EVERY 8 WEEKS
     Route: 042
     Dates: start: 20191219
  4. INFLECTRA [Suspect]
     Active Substance: INFLIXIMAB-DYYB
     Dosage: 5 MG/KG OR 295 MG AT WEEK 0, 2, 6 THEN EVERY 8 WEEKS
     Route: 042
     Dates: start: 20200212
  5. INFLECTRA [Suspect]
     Active Substance: INFLIXIMAB-DYYB
     Dosage: 5 MG/KG OR 295 MG AT WEEK 0, 2, 6 THEN EVERY 8 WEEKS
     Route: 042
     Dates: start: 20200409
  6. INFLECTRA [Suspect]
     Active Substance: INFLIXIMAB-DYYB
     Dosage: 5 MG/KG OR 300 MG AT WEEK 0, 2, 6 THEN EVERY 8 WEEKS
     Route: 042
     Dates: start: 20200604
  7. INFLECTRA [Suspect]
     Active Substance: INFLIXIMAB-DYYB
     Dosage: 5 MG/KG OR 300 MG AT WEEK 0, 2, 6 THEN EVERY 8 WEEKS
     Route: 042
     Dates: start: 20200730
  8. INFLECTRA [Suspect]
     Active Substance: INFLIXIMAB-DYYB
     Dosage: 5 MG/KG ROUND UP TO THE SUPERIOR VIAL EVERY 8 WEEKS
     Route: 042
     Dates: start: 20201001, end: 20201001
  9. INFLECTRA [Suspect]
     Active Substance: INFLIXIMAB-DYYB
     Dosage: 10 MG/KG ROUND UP TO THE NEAREST HUNDRED EVERY 4 WEEKS
     Route: 042
     Dates: start: 20201104
  10. INFLECTRA [Suspect]
     Active Substance: INFLIXIMAB-DYYB
     Dosage: 10 MG/KG ROUND UP TO THE NEAREST HUNDRED EVERY 4 WEEKS
     Route: 042
     Dates: start: 20201202
  11. INFLECTRA [Suspect]
     Active Substance: INFLIXIMAB-DYYB
     Dosage: 10 MG/KG ROUND UP TO THE NEAREST HUNDRED EVERY 4 WEEKS
     Route: 042
     Dates: start: 20201230
  12. INFLECTRA [Suspect]
     Active Substance: INFLIXIMAB-DYYB
     Dosage: 10 MG/KG ROUND UP TO THE NEAREST HUNDRED EVERY 4 WEEKS
     Route: 042
     Dates: start: 20210225
  13. INFLECTRA [Suspect]
     Active Substance: INFLIXIMAB-DYYB
     Dosage: 10 MG/KG ROUND UP TO THE NEAREST HUNDRED EVERY 4 WEEKS
     Route: 042
     Dates: start: 20210324
  14. INFLECTRA [Suspect]
     Active Substance: INFLIXIMAB-DYYB
     Dosage: 10 MG/KG ROUND UP TO THE NEAREST HUNDRED EVERY 4 WEEKS
     Route: 042
     Dates: start: 20210421
  15. INFLECTRA [Suspect]
     Active Substance: INFLIXIMAB-DYYB
     Dosage: 10 MG/KG ROUND UP TO THE NEAREST HUNDRED EVERY 4 WEEKS
     Route: 042
     Dates: start: 20210519
  16. INFLECTRA [Suspect]
     Active Substance: INFLIXIMAB-DYYB
     Dosage: 10 MG/KG ROUND UP TO THE NEAREST HUNDRED EVERY 4 WEEKS
     Route: 042
     Dates: start: 20210616
  17. INFLECTRA [Suspect]
     Active Substance: INFLIXIMAB-DYYB
     Dosage: 10 MG/KG ROUND UP TO THE NEAREST HUNDRED EVERY 4 WEEKS
     Route: 042
     Dates: start: 20210714
  18. INFLECTRA [Suspect]
     Active Substance: INFLIXIMAB-DYYB
     Dosage: 10 MG/KG ROUND UP TO THE NEAREST HUNDRED EVERY 4 WEEKS
     Route: 042
     Dates: start: 20210909
  19. INFLECTRA [Suspect]
     Active Substance: INFLIXIMAB-DYYB
     Dosage: 10 MG/KG ROUND UP TO THE NEAREST HUNDRED EVERY 4 WEEKS
     Route: 042
     Dates: start: 20211007
  20. INFLECTRA [Suspect]
     Active Substance: INFLIXIMAB-DYYB
     Dosage: 10 MG/KG ROUND UP TO THE NEAREST HUNDRED EVERY 4 WEEKS
     Route: 042
     Dates: start: 20211104
  21. INFLECTRA [Suspect]
     Active Substance: INFLIXIMAB-DYYB
     Dosage: 10 MG/KG ROUND UP TO THE NEAREST HUNDRED EVERY 4 WEEKS
     Route: 042
     Dates: start: 20211202
  22. INFLECTRA [Suspect]
     Active Substance: INFLIXIMAB-DYYB
     Dosage: 10 MG/KG ROUND UP TO THE NEAREST HUNDRED EVERY 4 WEEKS
     Route: 042
     Dates: start: 20211230
  23. INFLECTRA [Suspect]
     Active Substance: INFLIXIMAB-DYYB
     Dosage: 10 MG/KG ROUND UP TO THE NEAREST HUNDRED EVERY 4 WEEKS
     Route: 042
     Dates: start: 20220127
  24. INFLECTRA [Suspect]
     Active Substance: INFLIXIMAB-DYYB
     Dosage: 10 MG/KG ROUND UP TO THE NEAREST HUNDRED EVERY 4 WEEKS
     Route: 042
     Dates: start: 20220224
  25. AZATHIOPRINE [Concomitant]
     Active Substance: AZATHIOPRINE
     Dosage: UNK
     Dates: start: 20201206
  26. AZATHIOPRINE [Concomitant]
     Active Substance: AZATHIOPRINE
     Dosage: 1 DF, UNK DOSE
     Dates: start: 20201206
  27. CORTISONE [Concomitant]
     Active Substance: CORTISONE
     Dosage: 40 MG, 1X/DAY (THEN A DECREASING DOSE UNTIL 03JAN2021)
     Dates: start: 20201101
  28. CORTISONE [Concomitant]
     Active Substance: CORTISONE
     Dosage: UNK
  29. POLYETHYLENE GLYCOL 3350 [Concomitant]
     Active Substance: POLYETHYLENE GLYCOL 3350
     Indication: Constipation
     Dosage: 17 G, AS NEEDED
  30. VITAMINS [Concomitant]
     Active Substance: VITAMINS
     Dosage: UNK
     Route: 065
  31. PANTOPRAZOLE SODIUM [Concomitant]
     Active Substance: PANTOPRAZOLE SODIUM
     Indication: Dyspepsia
     Dosage: 40 UNK, AS NEEDED
  32. TYLENOL [Concomitant]
     Active Substance: ACETAMINOPHEN
     Dosage: UNK, AS NEEDED

REACTIONS (26)
  - Infection [Unknown]
  - Pyrexia [Unknown]
  - Malaise [Not Recovered/Not Resolved]
  - Diarrhoea haemorrhagic [Recovered/Resolved]
  - Colitis [Recovered/Resolved]
  - Drug specific antibody present [Unknown]
  - Off label use [Unknown]
  - Off label use [Unknown]
  - Intentional product use issue [Unknown]
  - Arthralgia [Not Recovered/Not Resolved]
  - Anal fissure [Unknown]
  - Carpal tunnel syndrome [Unknown]
  - Chills [Unknown]
  - Condition aggravated [Not Recovered/Not Resolved]
  - Eye pain [Unknown]
  - Fatigue [Unknown]
  - Grip strength decreased [Recovered/Resolved]
  - Hordeolum [Not Recovered/Not Resolved]
  - Nausea [Unknown]
  - Paraesthesia [Recovered/Resolved]
  - Accident [Unknown]
  - Pain [Not Recovered/Not Resolved]
  - Swelling [Not Recovered/Not Resolved]
  - Vomiting [Unknown]
  - Weight fluctuation [Unknown]
  - Weight increased [Unknown]

NARRATIVE: CASE EVENT DATE: 20191127
